FAERS Safety Report 10514498 (Version 2)
Quarter: 2015Q2

REPORT INFORMATION
  Report Type: Spontaneous
  Country: US (occurrence: US)
  Receive Date: 20141013
  Receipt Date: 20150420
  Transmission Date: 20150821
  Serious: Yes (Hospitalization)
  Sender: FDA-Public Use
  Company Number: US-BAYER-2014-150119

PATIENT
  Age: 33 Year
  Sex: Female
  Weight: 63.49 kg

DRUGS (2)
  1. MIRENA [Suspect]
     Active Substance: LEVONORGESTREL
     Indication: CONTRACEPTION
     Dosage: 20 MCG/24HR, CONT
     Route: 015
     Dates: start: 200907, end: 201010
  2. MIRENA [Suspect]
     Active Substance: LEVONORGESTREL
     Indication: CONTRACEPTION
     Dosage: 20 MCG/24HR, CONT
     Route: 015
     Dates: start: 20120220, end: 20121011

REACTIONS (7)
  - Uterine perforation [None]
  - Injury [None]
  - Depression [None]
  - Anxiety [None]
  - Device issue [None]
  - Abdominal pain [None]
  - Psychogenic pain disorder [None]

NARRATIVE: CASE EVENT DATE: 201208
